FAERS Safety Report 9682097 (Version 2)
Quarter: 2013Q4

REPORT INFORMATION
  Report Type: Report from Study
  Country: US (occurrence: US)
  Receive Date: 20131111
  Receipt Date: 20131114
  Transmission Date: 20140711
  Serious: Yes (Hospitalization, Other)
  Sender: FDA-Public Use
  Company Number: US-BAXTER-2013BAX043701

PATIENT
  Sex: Male

DRUGS (2)
  1. ARALAST NP [Suspect]
     Indication: ALPHA-1 ANTI-TRYPSIN DEFICIENCY
     Route: 042
  2. ARALAST NP [Suspect]
     Route: 042

REACTIONS (8)
  - Myocardial infarction [Unknown]
  - Type 1 diabetes mellitus [Not Recovered/Not Resolved]
  - Chronic obstructive pulmonary disease [Unknown]
  - Alpha-1 anti-trypsin deficiency [Not Recovered/Not Resolved]
  - Cardiomyopathy [Unknown]
  - Status asthmaticus [Unknown]
  - Cardiac failure congestive [Unknown]
  - Chronic obstructive pulmonary disease [Unknown]
